FAERS Safety Report 11402674 (Version 1)
Quarter: 2015Q3

REPORT INFORMATION
  Report Type: Spontaneous
  Country: US (occurrence: US)
  Receive Date: 20150821
  Receipt Date: 20150821
  Transmission Date: 20151125
  Serious: No
  Sender: FDA-Public Use
  Company Number: US-ROCHE-1306231

PATIENT
  Sex: Female

DRUGS (2)
  1. PEGASYS [Suspect]
     Active Substance: PEGINTERFERON ALFA-2A
     Indication: CHRONIC HEPATITIS C
     Route: 065
     Dates: start: 20131025
  2. RIBASPHERE RIBAPAK [Suspect]
     Active Substance: RIBAVIRIN
     Indication: CHRONIC HEPATITIS C
     Dosage: DIVIDED DOSES
     Route: 065
     Dates: start: 20131025

REACTIONS (11)
  - Rash [Unknown]
  - Memory impairment [Unknown]
  - Insomnia [Unknown]
  - Injection site erythema [Unknown]
  - Aggression [Unknown]
  - Pruritus [Unknown]
  - Depressed mood [Unknown]
  - Pollakiuria [Unknown]
  - Fatigue [Unknown]
  - Skin ulcer [Not Recovered/Not Resolved]
  - Injection site bruising [Unknown]
